FAERS Safety Report 4692619-8 (Version None)
Quarter: 2005Q2

REPORT INFORMATION
  Report Type: 
  Country: None (occurrence: None)
  Receive Date: 20050617
  Receipt Date: 20050606
  Transmission Date: 20051028
  Serious: Yes (Hospitalization)
  Sender: FDA-Public Use
  Company Number: DE-AMGEN-UK137320

PATIENT
  Sex: Female
  Weight: 74 kg

DRUGS (4)
  1. NEULASTA [Suspect]
     Indication: PERIPHERAL BLOOD STEM CELL APHERESIS
     Route: 058
     Dates: start: 20050521
  2. PIPERACILLIN/TAZOBACTAM [Concomitant]
     Route: 065
  3. ZOVIRAX [Concomitant]
     Route: 065
  4. CYCLOPHOSPHAMIDE [Concomitant]
     Route: 065

REACTIONS (3)
  - DIZZINESS [None]
  - HAEMOGLOBIN DECREASED [None]
  - SPLENIC RUPTURE [None]
